APPROVED DRUG PRODUCT: ETODOLAC
Active Ingredient: ETODOLAC
Strength: 400MG
Dosage Form/Route: TABLET, EXTENDED RELEASE;ORAL
Application: A075696 | Product #001
Applicant: ACTAVIS ELIZABETH LLC
Approved: Jul 31, 2000 | RLD: No | RS: No | Type: DISCN